FAERS Safety Report 5901184-6 (Version None)
Quarter: 2008Q3

REPORT INFORMATION
  Report Type: 
  Country: None (occurrence: None)
  Receive Date: 20080929
  Receipt Date: 20080717
  Transmission Date: 20090109
  Serious: Yes (Other)
  Sender: FDA-Public Use
  Company Number: US-BRISTOL-MYERS SQUIBB COMPANY-14131726

PATIENT
  Age: 66 Year
  Sex: Female

DRUGS (17)
  1. ORENCIA [Suspect]
     Indication: RHEUMATOID ARTHRITIS
     Dosage: THERAPYDATES:JAN08;3RD INFUSION:15MAR08,NEXT INFU:15APR08.
     Route: 042
     Dates: start: 20080219
  2. HUMALOG [Concomitant]
  3. VITAMIN A [Concomitant]
  4. OS-CAL [Concomitant]
  5. SYNTHROID [Concomitant]
  6. POTASSIUM CHLORIDE [Concomitant]
  7. PREDNISOLONE [Concomitant]
  8. HYDROCODONE BITARTRATE [Concomitant]
  9. LASIX [Concomitant]
  10. METOPROLOL SUCCINATE [Concomitant]
  11. GLIPIZIDE [Concomitant]
  12. XANAX [Concomitant]
  13. AMBIEN [Concomitant]
  14. HYZAAR [Concomitant]
  15. PREVACID [Concomitant]
  16. NORCO [Concomitant]
  17. TOPROL-XL [Concomitant]

REACTIONS (2)
  - BLADDER CANCER [None]
  - STOMATITIS [None]
